FAERS Safety Report 11759300 (Version 2)
Quarter: 2015Q4

REPORT INFORMATION
  Report Type: Spontaneous
  Country: US (occurrence: US)
  Receive Date: 20151120
  Receipt Date: 20151126
  Transmission Date: 20160304
  Serious: No
  Sender: FDA-Public Use
  Company Number: US-JNJFOC-20151102324

PATIENT
  Age: 45 Year
  Sex: Male
  Weight: 76.66 kg

DRUGS (2)
  1. MENS ROGAINE EXTRA STRENGTH [Suspect]
     Active Substance: MINOXIDIL
     Route: 061
  2. MENS ROGAINE EXTRA STRENGTH [Suspect]
     Active Substance: MINOXIDIL
     Indication: ALOPECIA
     Dosage: HALF A CAP
     Route: 061
     Dates: start: 20150906, end: 20151106

REACTIONS (3)
  - Inappropriate schedule of drug administration [Unknown]
  - Hair injury [Recovering/Resolving]
  - Hair texture abnormal [Recovering/Resolving]

NARRATIVE: CASE EVENT DATE: 20150906
